FAERS Safety Report 5189720-1 (Version None)
Quarter: 2006Q4

REPORT INFORMATION
  Report Type: 
  Country: None (occurrence: None)
  Receive Date: 20061221
  Receipt Date: 20050919
  Transmission Date: 20070319
  Serious: No
  Sender: FDA-Public Use
  Company Number: US-AMGEN-US151088

PATIENT
  Sex: Female
  Weight: 78.9 kg

DRUGS (2)
  1. ENBREL [Suspect]
     Indication: JUVENILE ARTHRITIS
     Route: 065
     Dates: start: 20030101, end: 20050901
  2. ALEVE [Concomitant]
     Route: 048

REACTIONS (5)
  - PRURITUS [None]
  - PYREXIA [None]
  - RASH [None]
  - SERUM SICKNESS [None]
  - URTICARIA [None]
